FAERS Safety Report 9322094 (Version 1)
Quarter: 2013Q2

REPORT INFORMATION
  Report Type: Spontaneous
  Country: US (occurrence: None)
  Receive Date: 20130528
  Receipt Date: 20130528
  Transmission Date: 20140414
  Serious: No
  Sender: FDA-Public Use
  Company Number: 2013-00096

PATIENT
  Sex: Female

DRUGS (1)
  1. ZICAM [Suspect]
     Dates: start: 201302

REACTIONS (2)
  - Anosmia [None]
  - Ageusia [None]
